FAERS Safety Report 5331731-7 (Version None)
Quarter: 2007Q2

REPORT INFORMATION
  Report Type: 
  Country: None (occurrence: None)
  Receive Date: 20070517
  Receipt Date: 20070419
  Transmission Date: 20071010
  Serious: Yes (Hospitalization)
  Sender: FDA-Public Use
  Company Number: TKT01200700201

PATIENT
  Age: 19 Year
  Sex: Male
  Weight: 52.5 kg

DRUGS (2)
  1. IDURSULFASE (IDURSULFASE) (0.5 MILLIGRAM(S) / KILOGRAM, CONCENTRATE FO [Suspect]
     Indication: MUCOPOLYSACCHARIDOSIS II
     Dosage: SEE IMAGE
     Route: 041
     Dates: start: 20040211
  2. IDURSULFASE (IDURSULFASE) (0.5 MILLIGRAM(S) / KILOGRAM, CONCENTRATE FO [Suspect]
     Indication: MUCOPOLYSACCHARIDOSIS II
     Dosage: SEE IMAGE
     Route: 041
     Dates: start: 20050210

REACTIONS (5)
  - BACTERAEMIA [None]
  - INFUSION RELATED REACTION [None]
  - POOR VENOUS ACCESS [None]
  - PYREXIA [None]
  - STAPHYLOCOCCAL INFECTION [None]
